FAERS Safety Report 14576722 (Version 1)
Quarter: 2018Q1

REPORT INFORMATION
  Report Type: Spontaneous
  Country: US (occurrence: US)
  Receive Date: 20180227
  Receipt Date: 20180227
  Transmission Date: 20180509
  Serious: Yes (Hospitalization)
  Sender: FDA-Public Use
  Company Number: US-ROCHE-2075323

PATIENT
  Age: 31 Year
  Sex: Female
  Weight: 54.48 kg

DRUGS (3)
  1. SINGULAIR [Concomitant]
     Active Substance: MONTELUKAST SODIUM
     Dosage: ONGOING: UNKNOWN
     Route: 065
  2. XOLAIR [Suspect]
     Active Substance: OMALIZUMAB
     Indication: PRODUCT USED FOR UNKNOWN INDICATION
     Dosage: ONGOING: UNKNOWN
     Route: 065
  3. LEVOTHYROXINE. [Concomitant]
     Active Substance: LEVOTHYROXINE
     Dosage: ONGOING: UNKNOWN
     Route: 065

REACTIONS (1)
  - Appendicitis [Unknown]

NARRATIVE: CASE EVENT DATE: 201802
